FAERS Safety Report 8333402-1 (Version None)
Quarter: 2012Q2

REPORT INFORMATION
  Report Type: 
  Country: None (occurrence: None)
  Receive Date: 20120503
  Receipt Date: 20120425
  Transmission Date: 20120825
  Serious: Yes (Hospitalization, Other)
  Sender: FDA-Public Use
  Company Number: FR-PFIZER INC-2012105739

PATIENT
  Age: 38 Year
  Sex: Female

DRUGS (2)
  1. EFFEXOR XR [Suspect]
     Dosage: 1 DF, DAILY
  2. OXAZEPAM [Suspect]
     Dosage: 10 MG
     Dates: start: 20060101

REACTIONS (2)
  - OLIGOHYDRAMNIOS [None]
  - VAGINAL DISCHARGE [None]
